FAERS Safety Report 7968792-2 (Version None)
Quarter: 2011Q4

REPORT INFORMATION
  Report Type: 
  Country: None (occurrence: None)
  Receive Date: 20111208
  Receipt Date: 20111121
  Transmission Date: 20120403
  Serious: Yes (Other)
  Sender: FDA-Public Use
  Company Number: 2011-4483

PATIENT
  Age: 15 Year
  Sex: Female
  Weight: 42.1 kg

DRUGS (4)
  1. INCRELEX [Suspect]
     Indication: PRIMARY INSULIN LIKE GROWTH FACTOR-1 DEFICIENCY
     Dosage: SEE IMAGE
     Dates: start: 20080220, end: 20090215
  2. INCRELEX [Suspect]
     Indication: PRIMARY INSULIN LIKE GROWTH FACTOR-1 DEFICIENCY
     Dosage: SEE IMAGE
     Dates: start: 20090216, end: 20100216
  3. INCRELEX [Suspect]
     Indication: PRIMARY INSULIN LIKE GROWTH FACTOR-1 DEFICIENCY
     Dosage: SEE IMAGE
     Dates: start: 20100217, end: 20110227
  4. INCRELEX [Suspect]
     Indication: PRIMARY INSULIN LIKE GROWTH FACTOR-1 DEFICIENCY
     Dosage: SEE IMAGE
     Dates: start: 20110228

REACTIONS (4)
  - WEIGHT INCREASED [None]
  - MENTAL DISORDER [None]
  - HYPERTROPHY [None]
  - SOFT TISSUE DISORDER [None]
